FAERS Safety Report 8117088-7 (Version None)
Quarter: 2011Q4

REPORT INFORMATION
  Report Type: 
  Country: None (occurrence: None)
  Receive Date: 20111227
  Receipt Date: 20110304
  Transmission Date: 20120403
  Serious: Yes (Other)
  Sender: FDA-Public Use
  Company Number: PHHY2011US17688

PATIENT
  Age: 64 Year
  Sex: Female
  Weight: 71.7 kg

DRUGS (5)
  1. CALCIUM CARBONATE [Concomitant]
  2. FEMARA [Suspect]
     Indication: BREAST CANCER
     Dosage: 2.5 MG, QD, ORAL
     Route: 048
     Dates: start: 20090301
  3. CARISOPRODOL (CARISOPRODOL) [Concomitant]
  4. HYDROCODONE BITARTRATE [Concomitant]
  5. BENAZEPRIL HYDROCHLORIDE [Concomitant]

REACTIONS (3)
  - DRUG INEFFECTIVE [None]
  - BREAST MASS [None]
  - BREAST CANCER RECURRENT [None]
